FAERS Safety Report 4724387-5 (Version None)
Quarter: 2005Q3

REPORT INFORMATION
  Report Type: 
  Country: None (occurrence: None)
  Receive Date: 20050722
  Receipt Date: 20050718
  Transmission Date: 20060218
  Serious: Yes (Hospitalization)
  Sender: FDA-Public Use
  Company Number: FRWYE839018JUL05

PATIENT
  Age: 45 Year
  Sex: Male

DRUGS (8)
  1. OXAZEPAM [Suspect]
     Indication: ANXIETY
     Dosage: 1 DOSE 1X PER 1 DAY ORAL
     Route: 048
     Dates: start: 20050413
  2. BUSPAR [Suspect]
     Indication: ANXIETY
     Dosage: 30 MG DAILY ORAL
     Route: 048
     Dates: start: 20050413
  3. EQUANIL [Suspect]
     Indication: ANXIETY
     Dosage: 1 DOSE 1X PER 1 DAY ORAL
     Route: 048
     Dates: start: 20050413
  4. GARDENAL (PHENOBARBITAL, , 0) [Suspect]
     Indication: EPILEPSY
     Dosage: 1 DOSE 1X PER 1 DAY ORAL
     Route: 048
     Dates: start: 20050406, end: 20050401
  5. TEGRETOL [Suspect]
     Indication: EPILEPSY
     Dosage: 1.5 DOSE 1X PER 1 DAY ORAL
     Route: 048
     Dates: start: 19930101
  6. TIAPRIDAL (TIAPRIDE, , 0) [Suspect]
     Dosage: SEE IMAGE
     Route: 048
     Dates: start: 20050415, end: 20050401
  7. TIAPRIDAL (TIAPRIDE, , 0) [Suspect]
     Dosage: SEE IMAGE
     Route: 048
     Dates: start: 20030501, end: 20050414
  8. PARKINANE (TRIHEXYPHENIDYL) [Concomitant]

REACTIONS (1)
  - GRAND MAL CONVULSION [None]
